FAERS Safety Report 8437392-2 (Version None)
Quarter: 2012Q2

REPORT INFORMATION
  Report Type: 
  Country: None (occurrence: None)
  Receive Date: 20120614
  Receipt Date: 20120320
  Transmission Date: 20120825
  Serious: No
  Sender: FDA-Public Use
  Company Number: US-AMGEN-USASP2011062740

PATIENT
  Age: 55 Year
  Sex: Female
  Weight: 61 kg

DRUGS (1)
  1. PROLIA [Suspect]
     Indication: OSTEOPOROSIS POSTMENOPAUSAL
     Dosage: 60 MG, Q6MO
     Route: 058
     Dates: start: 20110101

REACTIONS (3)
  - ARTHRALGIA [None]
  - JOINT RANGE OF MOTION DECREASED [None]
  - MYALGIA [None]
